FAERS Safety Report 10183839 (Version 1)
Quarter: 2014Q2

REPORT INFORMATION
  Report Type: Spontaneous
  Country: GB (occurrence: GB)
  Receive Date: 20140520
  Receipt Date: 20140520
  Transmission Date: 20141212
  Serious: Yes (Other)
  Sender: FDA-Public Use
  Company Number: GB-BRISTOL-MYERS SQUIBB COMPANY-20726543

PATIENT
  Age: 45 Year
  Sex: Female
  Weight: 79.9 kg

DRUGS (1)
  1. DASATINIB [Suspect]
     Dosage: INT ON 1JUL13
     Dates: start: 201103

REACTIONS (3)
  - Chronic myeloid leukaemia [Unknown]
  - Stem cell transplant [Unknown]
  - Graft versus host disease [Unknown]
